FAERS Safety Report 5104254-8 (Version None)
Quarter: 2006Q3

REPORT INFORMATION
  Report Type: 
  Country: None (occurrence: None)
  Receive Date: 20060911
  Receipt Date: 20060901
  Transmission Date: 20061208
  Serious: Yes (Death)
  Sender: FDA-Public Use
  Company Number: 228610

PATIENT
  Age: 49 Year
  Sex: Male
  Weight: 50.4 kg

DRUGS (13)
  1. MABTHERA (RITUXIMAB) [Suspect]
     Indication: B-CELL LYMPHOMA
     Dosage: 585 MG, INTRAVENOUS
     Route: 042
     Dates: start: 20060403
  2. CYCLOPHOSPHAMIDE [Suspect]
     Indication: B-CELL LYMPHOMA
     Dosage: 1170 MG, INTRAVENOUS
     Route: 042
     Dates: start: 20060403
  3. VINCRISTINE [Suspect]
     Indication: B-CELL LYMPHOMA
     Dosage: 2 MG, INTRAVENOUS
     Route: 042
     Dates: start: 20060403
  4. DOXORUBICIN HCL [Suspect]
     Indication: B-CELL LYMPHOMA
     Dosage: 70 MG, INTRAVENOUS
     Route: 042
     Dates: start: 20060403
  5. PREDNISOLONE [Suspect]
     Indication: B-CELL LYMPHOMA
     Dosage: 100 MG, ORAL
     Route: 048
     Dates: start: 20060403
  6. FE FUMARATE               (FERROUS FUMARATE) [Concomitant]
  7. VIT B2              (RIBOFLAVIN) [Concomitant]
  8. VITAMIN B               (VITAMIN B NOS) [Concomitant]
  9. CYANOCOBALAMIN [Concomitant]
  10. ASCORBIC ACID [Concomitant]
  11. NIACIN                   (NIACIN) [Concomitant]
  12. FOLIC ACID [Concomitant]
  13. CALCIUM PHOSPHATE, TRIBASIC (CALCIUM PHOSPHATE, TRIBASIC) [Concomitant]

REACTIONS (6)
  - ANAEMIA [None]
  - BLOOD GLUCOSE DECREASED [None]
  - BLOOD PRESSURE DECREASED [None]
  - PLATELET COUNT DECREASED [None]
  - PNEUMONIA [None]
  - SEPSIS [None]
